FAERS Safety Report 4517316-0 (Version None)
Quarter: 2004Q4

REPORT INFORMATION
  Report Type: 
  Country: None (occurrence: None)
  Receive Date: 20041008
  Receipt Date: 20040623
  Transmission Date: 20050328
  Serious: No
  Sender: FDA-Public Use
  Company Number: 2004S1000147

PATIENT
  Age: 80 Year
  Sex: Male

DRUGS (4)
  1. CUBICIN [Suspect]
     Indication: ARTHRITIS INFECTIVE
     Dosage: IV
     Route: 042
     Dates: start: 20040601
  2. CUBICIN [Suspect]
     Indication: IMPLANT SITE INFECTION
     Dosage: IV
     Route: 042
     Dates: start: 20040601
  3. VANCOMYCIN [Concomitant]
  4. DOXYCYCLINE [Concomitant]

REACTIONS (1)
  - EOSINOPHILIA [None]
